FAERS Safety Report 9172057 (Version 2)
Quarter: 2013Q2

REPORT INFORMATION
  Report Type: Spontaneous
  Country: US (occurrence: US)
  Receive Date: 20130319
  Receipt Date: 20130425
  Transmission Date: 20140414
  Serious: Yes (Hospitalization, Other)
  Sender: FDA-Public Use
  Company Number: US-TEVA-392646USA

PATIENT
  Age: 82 Year
  Sex: Male

DRUGS (9)
  1. TREANDA [Suspect]
     Indication: NON-HODGKIN^S LYMPHOMA
     Route: 042
  2. RITUXAN [Suspect]
     Indication: NON-HODGKIN^S LYMPHOMA
  3. METOPROLOL [Concomitant]
  4. LEVOTHYROXINE [Concomitant]
  5. FUROSEMIDE [Concomitant]
  6. ALLOPURINOL [Concomitant]
  7. ASPIRIN [Concomitant]
  8. HYDROXYZINE HCL [Concomitant]
  9. ACYCLOVIR [Concomitant]

REACTIONS (3)
  - Eczema [Recovering/Resolving]
  - Rash macular [Unknown]
  - Herpes zoster [Recovering/Resolving]
